FAERS Safety Report 7476329-X (Version None)
Quarter: 2011Q2

REPORT INFORMATION
  Report Type: 
  Country: None (occurrence: None)
  Receive Date: 20110512
  Receipt Date: 20110503
  Transmission Date: 20111010
  Serious: Yes (Other)
  Sender: FDA-Public Use
  Company Number: US-CEPHALON-2011002191

PATIENT
  Age: 65 Year
  Sex: Female

DRUGS (9)
  1. NUVIGIL [Suspect]
     Route: 048
     Dates: start: 20110101, end: 20110406
  2. EVOXAC [Concomitant]
  3. XALATAN [Concomitant]
  4. DIGOXIN [Concomitant]
  5. CALCIUM SUPPLEMENT [Concomitant]
  6. RESTASIS [Concomitant]
  7. CYMBALTA [Concomitant]
  8. MULTI-VITAMIN [Concomitant]
  9. AMBIEN [Concomitant]
     Dates: end: 20110101

REACTIONS (1)
  - HALLUCINATION [None]
